FAERS Safety Report 16707344 (Version 1)
Quarter: 2019Q3

REPORT INFORMATION
  Report Type: Spontaneous
  Country: GR (occurrence: GR)
  Receive Date: 20190815
  Receipt Date: 20190815
  Transmission Date: 20191004
  Serious: Yes (Life-Threatening, Other)
  Sender: FDA-Public Use
  Company Number: GR-BAUSCH-BL-2019-022258

PATIENT
  Age: 72 Year
  Sex: Female
  Weight: 77 kg

DRUGS (39)
  1. PREDNISOLONE. [Suspect]
     Active Substance: PREDNISOLONE
     Dosage: CYCLE 8
     Route: 048
     Dates: start: 20161207, end: 20161209
  2. VELCADE [Suspect]
     Active Substance: BORTEZOMIB
     Dosage: C2 D29
     Route: 058
     Dates: start: 20160426
  3. DARATUMUMAB [Suspect]
     Active Substance: DARATUMUMAB
     Dosage: CYCLE 1 DAY 11 - CYCLE 1 DAY 25
     Route: 042
     Dates: start: 20160225, end: 20160310
  4. PREDNISOLONE. [Suspect]
     Active Substance: PREDNISOLONE
     Dosage: CYCLE 9
     Route: 048
     Dates: start: 20170118, end: 20170120
  5. VELCADE [Suspect]
     Active Substance: BORTEZOMIB
     Dosage: CYCLE 3 DAY 8
     Route: 058
     Dates: start: 20160517
  6. VELCADE [Suspect]
     Active Substance: BORTEZOMIB
     Dosage: C1 D29
     Route: 058
     Dates: start: 20160315
  7. DARATUMUMAB [Suspect]
     Active Substance: DARATUMUMAB
     Dosage: CYCLE 7 DAY 29 - CYCLE 9 DAY 29
     Route: 042
     Dates: start: 20161122, end: 20170214
  8. PREDNISOLONE. [Suspect]
     Active Substance: PREDNISOLONE
     Indication: PLASMA CELL MYELOMA
     Route: 048
     Dates: start: 20160216, end: 20160218
  9. DARATUMUMAB [Suspect]
     Active Substance: DARATUMUMAB
     Indication: PLASMA CELL MYELOMA
     Dosage: CYCLE 1 DAY 29 - CYCLE 7 DAY 22
     Route: 042
     Dates: start: 20160315, end: 20161127
  10. PREDNISOLONE. [Suspect]
     Active Substance: PREDNISOLONE
     Dosage: CYCLE 4
     Route: 048
     Dates: start: 20160622, end: 20160624
  11. PREDNISOLONE. [Suspect]
     Active Substance: PREDNISOLONE
     Dosage: CYCLE 2
     Route: 048
     Dates: start: 20160330, end: 20160401
  12. VELCADE [Suspect]
     Active Substance: BORTEZOMIB
     Dosage: CYCLE 3 DAY 22
     Route: 058
     Dates: start: 20160531
  13. VELCADE [Suspect]
     Active Substance: BORTEZOMIB
     Dosage: C2 D22
     Route: 058
     Dates: start: 20160419
  14. MELPHALAN. [Suspect]
     Active Substance: MELPHALAN
     Dosage: CYCLE 3
     Route: 048
     Dates: start: 20160510, end: 20160513
  15. MELPHALAN. [Suspect]
     Active Substance: MELPHALAN
     Dosage: CYCLE 7
     Route: 048
     Dates: start: 20161025, end: 20161028
  16. MELPHALAN. [Suspect]
     Active Substance: MELPHALAN
     Dosage: CYCLE 8
     Route: 048
     Dates: start: 20161206, end: 20161209
  17. PREDNISOLONE. [Suspect]
     Active Substance: PREDNISOLONE
     Dosage: CYCLE 5
     Route: 048
     Dates: start: 20160803, end: 20160805
  18. VELCADE [Suspect]
     Active Substance: BORTEZOMIB
     Dosage: C1 D8
     Route: 058
     Dates: start: 20160222
  19. MELPHALAN. [Suspect]
     Active Substance: MELPHALAN
     Dosage: CYCLE 4
     Route: 048
     Dates: start: 20160621, end: 20160624
  20. DARATUMUMAB [Suspect]
     Active Substance: DARATUMUMAB
     Dosage: CYCLE 1 DAY 1 TO CYCLE 1 DAY 8
     Route: 042
     Dates: start: 20160215, end: 20160222
  21. BIVOL [Concomitant]
     Active Substance: NEBIVOLOL HYDROCHLORIDE
     Indication: HYPERTENSION
     Route: 048
     Dates: start: 2012
  22. VELCADE [Suspect]
     Active Substance: BORTEZOMIB
     Indication: PLASMA CELL MYELOMA
     Dosage: C1 D1
     Route: 058
     Dates: start: 20160215
  23. VELCADE [Suspect]
     Active Substance: BORTEZOMIB
     Dosage: C1 D25
     Route: 058
     Dates: start: 20160310
  24. VELCADE [Suspect]
     Active Substance: BORTEZOMIB
     Dosage: C2 D1
     Route: 058
     Dates: start: 20160329
  25. MELPHALAN. [Suspect]
     Active Substance: MELPHALAN
     Route: 048
     Dates: start: 20160215, end: 20160218
  26. MELPHALAN. [Suspect]
     Active Substance: MELPHALAN
     Dosage: CYCLE 9
     Route: 048
     Dates: start: 20170117, end: 20170120
  27. MELPHALAN. [Suspect]
     Active Substance: MELPHALAN
     Dosage: CYCLE 2
     Route: 048
     Dates: start: 20160329, end: 20160401
  28. PREDNISOLONE. [Suspect]
     Active Substance: PREDNISOLONE
     Dosage: CYCLE 6
     Route: 048
     Dates: start: 20160914, end: 20160916
  29. PREDNISOLONE. [Suspect]
     Active Substance: PREDNISOLONE
     Dosage: CYCLE 7
     Route: 048
     Dates: start: 20161026, end: 20161028
  30. VELCADE [Suspect]
     Active Substance: BORTEZOMIB
     Dosage: C1 D32
     Route: 058
     Dates: start: 20160318
  31. VELCADE [Suspect]
     Active Substance: BORTEZOMIB
     Dosage: C1 D11
     Route: 058
     Dates: start: 20160225
  32. MELPHALAN. [Suspect]
     Active Substance: MELPHALAN
     Indication: PLASMA CELL MYELOMA
     Dosage: CYCLE 5
     Route: 048
     Dates: start: 20160802, end: 20160805
  33. DIPENTUM [Concomitant]
     Active Substance: OLSALAZINE SODIUM
     Indication: ATRIAL FIBRILLATION
     Route: 048
     Dates: start: 2012
  34. PREDNISOLONE. [Suspect]
     Active Substance: PREDNISOLONE
     Dosage: CYCLE 3
     Route: 048
     Dates: start: 20160511, end: 20160513
  35. VELCADE [Suspect]
     Active Substance: BORTEZOMIB
     Dosage: C2 D8
     Route: 058
     Dates: start: 20160405
  36. VELCADE [Suspect]
     Active Substance: BORTEZOMIB
     Dosage: C1 D4
     Route: 058
     Dates: start: 20160219
  37. VELCADE [Suspect]
     Active Substance: BORTEZOMIB
     Dosage: CYCLE 3 DAY 1
     Route: 058
     Dates: start: 20160510
  38. MELPHALAN. [Suspect]
     Active Substance: MELPHALAN
     Dosage: CYCLE 6
     Route: 048
     Dates: start: 20160913, end: 20160916
  39. SINTROM [Concomitant]
     Active Substance: ACENOCOUMAROL
     Indication: ATRIAL FIBRILLATION
     Route: 048
     Dates: start: 2011

REACTIONS (2)
  - Neutropenia [Unknown]
  - Thrombocytopenia [Recovered/Resolved]

NARRATIVE: CASE EVENT DATE: 20160229
